FAERS Safety Report 8275546-9 (Version None)
Quarter: 2012Q2

REPORT INFORMATION
  Report Type: 
  Country: None (occurrence: None)
  Receive Date: 20120412
  Receipt Date: 20120405
  Transmission Date: 20120825
  Serious: Yes (Other)
  Sender: FDA-Public Use
  Company Number: US-AMGEN-USASP2012021711

PATIENT
  Age: 68 Year
  Sex: Female

DRUGS (1)
  1. ENBREL [Suspect]
     Indication: RHEUMATOID ARTHRITIS
     Dosage: 50 MG, QWK
     Dates: start: 20080919

REACTIONS (6)
  - INJECTION SITE PAIN [None]
  - WEIGHT DECREASED [None]
  - DECREASED APPETITE [None]
  - FATIGUE [None]
  - SOMNOLENCE [None]
  - DIARRHOEA [None]
